FAERS Safety Report 5649966-2 (Version None)
Quarter: 2008Q1

REPORT INFORMATION
  Report Type: 
  Country: None (occurrence: None)
  Receive Date: 20080303
  Receipt Date: 20080222
  Transmission Date: 20080703
  Serious: Yes (Death)
  Sender: FDA-Public Use
  Company Number: L08-USA-00315-32

PATIENT
  Age: 58 Year
  Sex: Female

DRUGS (3)
  1. CITALOPRAM HYDROBROMIDE [Suspect]
  2. MORPHINE [Suspect]
  3. DOXEPIN HCL [Suspect]

REACTIONS (4)
  - CARDIAC ARREST [None]
  - DRUG TOXICITY [None]
  - OVERDOSE [None]
  - RESPIRATORY ARREST [None]
